FAERS Safety Report 9980191 (Version 1)
Quarter: 2014Q1

REPORT INFORMATION
  Report Type: Report from Study
  Country: US (occurrence: US)
  Receive Date: 20140307
  Receipt Date: 20140307
  Transmission Date: 20141002
  Serious: No
  Sender: FDA-Public Use
  Company Number: US-ABBVIE-13P-163-1174777-00

PATIENT
  Sex: Male

DRUGS (6)
  1. HUMIRA [Suspect]
     Indication: CROHN^S DISEASE
     Dates: start: 20131029
  2. HUMIRA [Suspect]
     Dates: start: 20131113
  3. MERCAPTOPURINE [Concomitant]
     Indication: DRUG EFFECT INCREASED
  4. BUDESONIDE [Concomitant]
     Indication: PRODUCT USED FOR UNKNOWN INDICATION
  5. BUSPAR [Concomitant]
     Indication: ANXIETY
  6. XANAX [Concomitant]
     Indication: INSOMNIA

REACTIONS (1)
  - Inappropriate schedule of drug administration [Unknown]
